FAERS Safety Report 5068615-8 (Version None)
Quarter: 2006Q3

REPORT INFORMATION
  Report Type: 
  Country: None (occurrence: None)
  Receive Date: 20060802
  Receipt Date: 20060106
  Transmission Date: 20061208
  Serious: Yes (Other)
  Sender: FDA-Public Use
  Company Number: US-BRISTOL-MYERS SQUIBB COMPANY-13238431

PATIENT
  Age: 80 Year
  Sex: Male
  Weight: 70 kg

DRUGS (8)
  1. COUMADIN [Suspect]
  2. NEXIUM [Concomitant]
  3. LIPITOR [Concomitant]
  4. ARICEPT [Concomitant]
  5. METOPROLOL [Concomitant]
  6. NAMENDA [Concomitant]
  7. ZOLOFT [Concomitant]
  8. AMBIEN [Concomitant]

REACTIONS (1)
  - INTERNATIONAL NORMALISED RATIO DECREASED [None]
